FAERS Safety Report 4333109-1 (Version None)
Quarter: 2004Q2

REPORT INFORMATION
  Report Type: 
  Country: None (occurrence: None)
  Receive Date: 20040405
  Receipt Date: 20040405
  Transmission Date: 20050107
  Serious: Yes (Other)
  Sender: FDA-Public Use
  Company Number: None

PATIENT
  Age: 26 Year
  Sex: Female
  Weight: 70.3075 kg

DRUGS (2)
  1. PAXIL [Suspect]
     Indication: ANXIETY
     Dosage: 1 PILL EVERY MORN ORAL
     Route: 048
     Dates: start: 20031101, end: 20040401
  2. PAXIL [Suspect]
     Indication: DEPRESSION
     Dosage: 1 PILL EVERY MORN ORAL
     Route: 048
     Dates: start: 20031101, end: 20040401

REACTIONS (6)
  - DIZZINESS [None]
  - EYE MOVEMENT DISORDER [None]
  - FEELING ABNORMAL [None]
  - NAUSEA [None]
  - TREATMENT NONCOMPLIANCE [None]
  - VOMITING [None]
